FAERS Safety Report 21299098 (Version 2)
Quarter: 2022Q3

REPORT INFORMATION
  Report Type: Spontaneous
  Country: JP (occurrence: JP)
  Receive Date: 20220906
  Receipt Date: 20220919
  Transmission Date: 20221026
  Serious: Yes (Hospitalization)
  Sender: FDA-Public Use
  Company Number: JP-TEVA-2022-JP-2070344

PATIENT
  Age: 61 Year
  Sex: Male

DRUGS (7)
  1. ACYCLOVIR [Suspect]
     Active Substance: ACYCLOVIR
     Indication: Product used for unknown indication
     Route: 048
  2. PREDNISOLONE [Suspect]
     Active Substance: PREDNISOLONE
     Indication: Autoimmune hepatitis
     Route: 065
  3. BETAMETHASONE BUTYRATE PROPIONATE [Suspect]
     Active Substance: BETAMETHASONE BUTYRATE PROPIONATE
     Indication: Sudden hearing loss
     Route: 065
  4. SULFAMETHOXAZOLE\TRIMETHOPRIM [Concomitant]
     Active Substance: SULFAMETHOXAZOLE\TRIMETHOPRIM
     Indication: Product used for unknown indication
     Route: 048
  5. METHYLCOBALAMIN [Concomitant]
     Active Substance: METHYLCOBALAMIN
     Indication: Sudden hearing loss
     Route: 065
  6. TEPRENONE [Concomitant]
     Active Substance: TEPRENONE
     Indication: Sudden hearing loss
     Route: 065
  7. ADENOSINE TRIPHOSPHATE DISODIUM HYDRATE [Concomitant]
     Indication: Sudden hearing loss
     Route: 065

REACTIONS (2)
  - Acute hepatic failure [Recovered/Resolved]
  - Loss of consciousness [Recovered/Resolved]
